FAERS Safety Report 5258782-5 (Version None)
Quarter: 2007Q1

REPORT INFORMATION
  Report Type: 
  Country: None (occurrence: None)
  Receive Date: 20061117
  Receipt Date: 20060116
  Transmission Date: 20070707
  Serious: Yes (Hospitalization)
  Sender: FDA-Public Use
  Company Number: US-JNJFOC-20060103396

PATIENT
  Age: 50 Year
  Sex: Female

DRUGS (1)
  1. LEVAQUIN [Suspect]
     Indication: STREPTOCOCCAL INFECTION
     Dosage: 500 MG, 1 IN  1 DAY, ORAL
     Route: 048

REACTIONS (1)
  - SWOLLEN TONGUE [None]
